FAERS Safety Report 13960425 (Version 1)
Quarter: 2017Q3

REPORT INFORMATION
  Report Type: Spontaneous
  Country: US (occurrence: None)
  Receive Date: 20170912
  Receipt Date: 20170912
  Transmission Date: 20171128
  Serious: No
  Sender: FDA-Public Use
  Company Number: None

PATIENT
  Age: 86 Year
  Sex: Female
  Weight: 68.04 kg

DRUGS (21)
  1. XARELTO [Concomitant]
     Active Substance: RIVAROXABAN
  2. MULTI-VIT [Concomitant]
     Active Substance: VITAMINS
  3. COQ10 [Concomitant]
     Active Substance: UBIDECARENONE
  4. OMERPRAZOLE [Concomitant]
     Active Substance: OMEPRAZOLE
  5. FOLIC ACID. [Concomitant]
     Active Substance: FOLIC ACID
  6. VERAPRAMIL [Concomitant]
  7. FUROSEMIDE. [Concomitant]
     Active Substance: FUROSEMIDE
  8. LOSARTAN. [Concomitant]
     Active Substance: LOSARTAN
  9. VITAMIN D [Concomitant]
     Active Substance: CHOLECALCIFEROL
  10. HCTZ [Concomitant]
     Active Substance: HYDROCHLOROTHIAZIDE
  11. OMEGA 3 [Concomitant]
     Active Substance: OMEGA-3 FATTY ACIDS
  12. MAGNESIUM [Concomitant]
     Active Substance: MAGNESIUM
  13. ELIQUIS [Suspect]
     Active Substance: APIXABAN
     Indication: ATRIAL FIBRILLATION
     Dosage: 1 PILL 1 X DA BY MOUTH
     Route: 048
     Dates: start: 20170708, end: 20170708
  14. POTASSIUM [Concomitant]
     Active Substance: POTASSIUM
  15. SIMVASTATIN. [Concomitant]
     Active Substance: SIMVASTATIN
  16. VIT B [Concomitant]
     Active Substance: VITAMIN B
  17. LUTIN [Concomitant]
  18. MULTAQ [Concomitant]
     Active Substance: DRONEDARONE
  19. VITAMIN C [Concomitant]
     Active Substance: ASCORBIC ACID
  20. ACIDOPHYLLIS [Concomitant]
  21. GLUCOSAMINE [Concomitant]
     Active Substance: GLUCOSAMINE

REACTIONS (2)
  - Bone pain [None]
  - Myalgia [None]

NARRATIVE: CASE EVENT DATE: 20170708
